FAERS Safety Report 6385089-5 (Version None)
Quarter: 2009Q4

REPORT INFORMATION
  Report Type: 
  Country: None (occurrence: None)
  Receive Date: 20091002
  Receipt Date: 20090925
  Transmission Date: 20100525
  Serious: Yes (Disabling)
  Sender: FDA-Public Use
  Company Number: DE-ASTRAZENECA-2009SE16566

PATIENT
  Sex: Female

DRUGS (1)
  1. CARBOSTESIN [Suspect]
     Route: 065

REACTIONS (1)
  - CAUDA EQUINA SYNDROME [None]
